FAERS Safety Report 16809527 (Version 1)
Quarter: 2019Q3

REPORT INFORMATION
  Report Type: Spontaneous
  Country: SE (occurrence: SE)
  Receive Date: 20190916
  Receipt Date: 20190916
  Transmission Date: 20191005
  Serious: Yes (Hospitalization, Other)
  Sender: FDA-Public Use
  Company Number: SE-ASTRAZENECA-2019SF28472

PATIENT
  Age: 21024 Day
  Sex: Female

DRUGS (3)
  1. LONG ACTING INSULINE [Concomitant]
  2. FORXIGA [Suspect]
     Active Substance: DAPAGLIFLOZIN
     Indication: TYPE 1 DIABETES MELLITUS
     Dosage: 5.0MG UNKNOWN
     Route: 048
     Dates: start: 20190825, end: 20190901
  3. RAPIDLY-ACTING INSULIN [Concomitant]

REACTIONS (5)
  - Gastroenteritis viral [Unknown]
  - Urosepsis [Unknown]
  - Abdominal pain upper [Unknown]
  - Vomiting [Unknown]
  - Diabetic ketoacidosis [Unknown]

NARRATIVE: CASE EVENT DATE: 20190902
